FAERS Safety Report 5427679-X (Version None)
Quarter: 2007Q3

REPORT INFORMATION
  Report Type: 
  Country: None (occurrence: None)
  Receive Date: 20070823
  Receipt Date: 20070815
  Transmission Date: 20080115
  Serious: Yes (Hospitalization)
  Sender: FDA-Public Use
  Company Number: 2007-03807

PATIENT
  Age: 85 Year
  Sex: Female

DRUGS (5)
  1. GABAPENTIN [Suspect]
     Indication: DIABETIC NEUROPATHY
     Dosage: 150 MG, TID,
     Dates: start: 20070101, end: 20070101
  2. HALOPERIDOL [Concomitant]
  3. LANSOPRAZOLE [Concomitant]
  4. ASPIRIN [Concomitant]
  5. DILTIAZEM [Concomitant]

REACTIONS (2)
  - MYOPATHY [None]
  - RENAL FAILURE ACUTE [None]
